FAERS Safety Report 4577393-8 (Version None)
Quarter: 2005Q1

REPORT INFORMATION
  Report Type: 
  Country: None (occurrence: None)
  Receive Date: 20050210
  Receipt Date: 20050201
  Transmission Date: 20050727
  Serious: Yes (Death)
  Sender: FDA-Public Use
  Company Number: US-BRISTOL-MYERS SQUIBB COMPANY-12845582

PATIENT
  Age: 62 Year
  Sex: Female

DRUGS (2)
  1. TAXOL [Suspect]
     Dates: start: 20040311, end: 20040311
  2. CARBOPLATIN [Suspect]
     Dates: start: 20040311, end: 20040311

REACTIONS (1)
  - DEATH [None]
